FAERS Safety Report 4714959-6 (Version None)
Quarter: 2005Q3

REPORT INFORMATION
  Report Type: 
  Country: None (occurrence: None)
  Receive Date: 20050715
  Receipt Date: 20050704
  Transmission Date: 20060218
  Serious: Yes (Other)
  Sender: FDA-Public Use
  Company Number: DE-JNJFOC-20050605035

PATIENT
  Sex: Female
  Weight: 2.35 kg

DRUGS (1)
  1. HALDOL DECANOAT [Suspect]

REACTIONS (4)
  - FOETAL GROWTH RETARDATION [None]
  - FOOT DEFORMITY [None]
  - JAUNDICE [None]
  - PREMATURE BABY [None]
